FAERS Safety Report 10098340 (Version 3)
Quarter: 2014Q2

REPORT INFORMATION
  Report Type: Spontaneous
  Country: GB (occurrence: None)
  Receive Date: 20140421
  Receipt Date: 20140603
  Transmission Date: 20141212
  Serious: Yes (Death, Hospitalization)
  Sender: FDA-Public Use
  Company Number: 2011GB000563

PATIENT
  Age: 56 Year
  Sex: Male
  Weight: 119 kg

DRUGS (13)
  1. PONATINIB [Suspect]
     Indication: CHRONIC MYELOID LEUKAEMIA
     Route: 048
     Dates: start: 20110609, end: 20110619
  2. INSULIN (INSULIN) [Concomitant]
  3. OMEPRAZOLE (OMEPRAZOLE) [Concomitant]
  4. VITAMIN B (VITAMIN B COMPLEX) [Concomitant]
  5. SIMVASTATIN (SIMVASTATIN) [Concomitant]
  6. QUININE (QUININE) [Concomitant]
  7. TRAMADOL (TRAMADOL) [Concomitant]
  8. CO CODAMOL (CODEINE PHOSPHATE, PARACETAMOL) [Concomitant]
  9. VOLTAROL (DICLOFENAC SODIUM) [Concomitant]
  10. PREGABALIN (PREGABALIN) [Concomitant]
  11. ALLOPURINOL (ALLOPURINOL) [Concomitant]
  12. HYDROXYCARBAMIDE (HYDROXYCARBAMIDE) [Concomitant]
  13. ASPIRIN (ASPIRIN) [Concomitant]

REACTIONS (9)
  - Cerebral infarction [None]
  - Chronic myeloid leukaemia [None]
  - Renal failure [None]
  - Clostridium test positive [None]
  - White blood cell count increased [None]
  - Infection [None]
  - Platelet count decreased [None]
  - Haemodynamic instability [None]
  - General physical health deterioration [None]
